FAERS Safety Report 9281467 (Version 1)
Quarter: 2013Q2

REPORT INFORMATION
  Report Type: Spontaneous
  Country: US (occurrence: US)
  Receive Date: 20130509
  Receipt Date: 20130509
  Transmission Date: 20140414
  Serious: No
  Sender: FDA-Public Use
  Company Number: US-ASTRAZENECA-2012SE80819

PATIENT
  Age: 80 Year
  Sex: Female
  Weight: 61.2 kg

DRUGS (5)
  1. AROMASIN [Suspect]
     Indication: BREAST CANCER
     Route: 048
  2. FASLODEX [Suspect]
     Indication: BREAST CANCER
     Route: 030
  3. TYLENOL III [Concomitant]
  4. VITAMIN D3 [Concomitant]
  5. LIDODERM [Concomitant]

REACTIONS (7)
  - Bursitis [Unknown]
  - Tumour marker increased [Unknown]
  - Mental impairment [Unknown]
  - Abulia [Unknown]
  - Malaise [Unknown]
  - Arthralgia [Unknown]
  - Fatigue [Unknown]
